FAERS Safety Report 23859630 (Version 5)
Quarter: 2024Q2

REPORT INFORMATION
  Report Type: Spontaneous
  Country: US (occurrence: US)
  Receive Date: 20240515
  Receipt Date: 20240605
  Transmission Date: 20240715
  Serious: No
  Sender: FDA-Public Use
  Company Number: US-BAUSCH-BL-2024-007302

PATIENT
  Age: 67 Year
  Sex: Female

DRUGS (3)
  1. TRULANCE [Suspect]
     Active Substance: PLECANATIDE
     Indication: Irritable bowel syndrome
     Route: 048
     Dates: start: 20240424, end: 2024
  2. TRULANCE [Suspect]
     Active Substance: PLECANATIDE
     Dosage: TAKING 1/2 TABLET OF TRULANCE
     Route: 048
     Dates: start: 2024, end: 2024
  3. TRULANCE [Suspect]
     Active Substance: PLECANATIDE
     Route: 048
     Dates: start: 20240528

REACTIONS (9)
  - Gastrointestinal motility disorder [Not Recovered/Not Resolved]
  - Presyncope [Unknown]
  - Carbon dioxide decreased [Unknown]
  - Dehydration [Not Recovered/Not Resolved]
  - Anion gap increased [Unknown]
  - Heart rate increased [Unknown]
  - Malaise [Unknown]
  - Diarrhoea [Not Recovered/Not Resolved]
  - Wrong technique in product usage process [Unknown]

NARRATIVE: CASE EVENT DATE: 20240101
